FAERS Safety Report 9456775 (Version 1)
Quarter: 2013Q3

REPORT INFORMATION
  Report Type: Spontaneous
  Country: DE (occurrence: DE)
  Receive Date: 20130813
  Receipt Date: 20130813
  Transmission Date: 20140515
  Serious: Yes (Death, Other)
  Sender: FDA-Public Use
  Company Number: DE-BAXTER-2013BAX031299

PATIENT
  Age: 23 Year
  Sex: Male

DRUGS (7)
  1. HOLOXAN 3.00 G [Suspect]
     Indication: CHEMOTHERAPY
     Route: 065
  2. HOLOXAN 3.00 G [Suspect]
     Dosage: DOSE WAS REDUCED AFTER 7 CYCLES
     Route: 065
  3. DOXORUBICIN [Suspect]
     Indication: CHEMOTHERAPY
  4. DOXORUBICIN [Suspect]
     Dosage: DOSING WAS REDUCED AFTER 7 CYCLES
  5. GEMCITABINE [Suspect]
     Indication: NEOPLASM PROGRESSION
     Route: 065
  6. DOCETAXEL [Suspect]
     Indication: NEOPLASM PROGRESSION
     Route: 065
  7. SIROLIMUS [Concomitant]
     Indication: NEOPLASM
     Route: 065

REACTIONS (3)
  - Neoplasm progression [Fatal]
  - Haematotoxicity [Not Recovered/Not Resolved]
  - Malignant ascites [Not Recovered/Not Resolved]
